FAERS Safety Report 7904135 (Version 7)
Quarter: 2018Q2

REPORT INFORMATION
  Report Type: Spontaneous
  Country: BR (occurrence: BR)
  Receive Date: 20110419
  Receipt Date: 20180411
  Transmission Date: 20180711
  Serious: Yes (Other)
  Sender: FDA-Public Use
  Company Number: BR-PFIZER INC-2011081466

PATIENT
  Age: 63 Year
  Sex: Female
  Weight: 84 kg

DRUGS (6)
  1. TENORETIC [Concomitant]
     Active Substance: ATENOLOL\CHLORTHALIDONE
     Indication: ARRHYTHMIA
  2. XALATAN [Suspect]
     Active Substance: LATANOPROST
     Dosage: 3 UG, 1X/DAY (ONE DROP EACH EYE (1.5UG EACH EYE)
     Route: 047
     Dates: start: 2009
  3. XALATAN [Suspect]
     Active Substance: LATANOPROST
     Indication: GLAUCOMA
     Dosage: 3 UG, 1X/DAY (ONE DROP EACH EYE (1.5UG EACH EYE)
     Route: 047
     Dates: start: 2009
  4. XALACOM [Suspect]
     Active Substance: LATANOPROST\TIMOLOL MALEATE
     Dosage: UNK
     Route: 047
  5. LATANOPROST. [Suspect]
     Active Substance: LATANOPROST
     Dosage: UNK
     Dates: start: 201206
  6. TENORETIC [Concomitant]
     Active Substance: ATENOLOL\CHLORTHALIDONE
     Indication: HYPERTENSION
     Dosage: 1 DF, 1X/DAY (IN THE MORNING)
     Dates: start: 2001

REACTIONS (19)
  - Bedridden [Not Recovered/Not Resolved]
  - Hypersensitivity [Not Recovered/Not Resolved]
  - Neck injury [Not Recovered/Not Resolved]
  - Drug dose omission [Unknown]
  - Pain in extremity [Recovered/Resolved]
  - Headache [Not Recovered/Not Resolved]
  - Drug dispensing error [Unknown]
  - Hypertension [Not Recovered/Not Resolved]
  - Erythema [Not Recovered/Not Resolved]
  - Gait inability [Recovered/Resolved]
  - Psoriasis [Unknown]
  - Eye pruritus [Not Recovered/Not Resolved]
  - Peripheral swelling [Recovered/Resolved]
  - Arthropathy [Recovered/Resolved]
  - Ocular hyperaemia [Not Recovered/Not Resolved]
  - Neovascular age-related macular degeneration [Recovered/Resolved]
  - Skin discolouration [Not Recovered/Not Resolved]
  - Skin wound [Not Recovered/Not Resolved]
  - Nervousness [Not Recovered/Not Resolved]

NARRATIVE: CASE EVENT DATE: 200907
